FAERS Safety Report 9146630 (Version 1)
Quarter: 2013Q1

REPORT INFORMATION
  Report Type: Spontaneous
  Country: US (occurrence: US)
  Receive Date: 20130307
  Receipt Date: 20130307
  Transmission Date: 20140127
  Serious: No
  Sender: FDA-Public Use
  Company Number: US-009507513-1302USA013446

PATIENT
  Sex: 0

DRUGS (3)
  1. VICTRELIS [Suspect]
     Indication: HEPATITIS C
     Dosage: 800 MG/ THREE TIMES DAILY
     Route: 048
  2. RIBAVIRIN [Suspect]
  3. PEGINTERFERON ALFA-2B [Suspect]

REACTIONS (1)
  - Haemolytic anaemia [Unknown]
